FAERS Safety Report 14703894 (Version 2)
Quarter: 2019Q2

REPORT INFORMATION
  Report Type: Spontaneous
  Country: US (occurrence: US)
  Receive Date: 20180402
  Receipt Date: 20190501
  Transmission Date: 20190711
  Serious: No
  Sender: FDA-Public Use
  Company Number: US-PFIZER INC-2018132245

PATIENT
  Age: 81 Year
  Sex: Male
  Weight: 93 kg

DRUGS (15)
  1. DELTASONE [DEXAMETHASONE] [Concomitant]
     Dosage: 20 MG, DAILY (ONE TABLET DAILY FOR 3 DAYS)
     Route: 048
  2. LYRICA [Suspect]
     Active Substance: PREGABALIN
     Indication: POST HERPETIC NEURALGIA
     Dosage: 75 MG, 2X/DAY
     Route: 048
     Dates: start: 2017, end: 201801
  3. ROXICODONE [Concomitant]
     Active Substance: OXYCODONE HYDROCHLORIDE
     Dosage: 5 MG, AS NEEDED (TAKE 1 TABLET EVERY 4 HOURS AS NEEDED FOR UP TO 16 DOSES)
     Route: 048
  4. DELTASONE [DEXAMETHASONE] [Concomitant]
     Dosage: 20 MG, 2X/DAY (1 TABLET TWICE A DAY FOR 3 DAYS)
     Route: 048
  5. DELTASONE [DEXAMETHASONE] [Concomitant]
     Dosage: 20 MG, 3X/DAY (TAKE 1 TABLET 3 TIMES A DAY TODAY)
     Route: 048
  6. AMOXIL [Concomitant]
     Active Substance: AMOXICILLIN
     Dosage: 50 MG, 4X/DAY (TAKE ONE CAPSULE BY MOUTH 4 TIMES A DAY)
     Route: 048
  7. MOBIC [Concomitant]
     Active Substance: MELOXICAM
     Dosage: 15 MG, AS NEEDED (TAKE 1 TABLET DAILY AS NEEDED)
     Route: 048
  8. NEURONTIN [Concomitant]
     Active Substance: GABAPENTIN
     Indication: NEURALGIA
  9. PERCOCET [Concomitant]
     Active Substance: ACETAMINOPHEN\OXYCODONE HYDROCHLORIDE
     Indication: PAIN
     Dosage: UNK, AS NEEDED (TAKE 1-2 TABLET EVERY 4 HOURS AS NEEDED)
     Route: 048
  10. RELAFEN [Concomitant]
     Active Substance: NABUMETONE
     Dosage: 750 MG, 2X/DAY (TAKE 1 TABLET TWICE DAILY)
     Route: 048
  11. PERCOCET [Concomitant]
     Active Substance: ACETAMINOPHEN\OXYCODONE HYDROCHLORIDE
     Dosage: 1 DF, AS NEEDED (TAKE 1 TABLET EVERY 4 HOURS AS NEEDED)
     Route: 048
  12. VALTREX [Concomitant]
     Active Substance: VALACYCLOVIR HYDROCHLORIDE
     Dosage: 1 G, AS NEEDED1 G, 3X/DAY (TAKE 1 TABLET 3 TIMES DAILY WHEN NEEDED)
     Route: 048
  13. TYLOX [Concomitant]
     Active Substance: ACETAMINOPHEN\OXYCODONE HYDROCHLORIDE
     Indication: PAIN
     Dosage: UNK, AS NEEDED (TAKE 1-2 TABLET EVERY 4 HOURS AS NEEDED)
     Route: 048
  14. NEURONTIN [Concomitant]
     Active Substance: GABAPENTIN
     Indication: SEIZURE
     Dosage: 300 MG, 3X/DAY (TAKE 1 CAPSULE 3 TIMES DAILY START AT BEDTIME)
  15. TYLOX [Concomitant]
     Active Substance: ACETAMINOPHEN\OXYCODONE HYDROCHLORIDE
     Dosage: 1 DF, AS NEEDED (TAKE 1 TABLET EVERY 4 HOURS AS NEEDED)
     Route: 048

REACTIONS (1)
  - Drug ineffective [Unknown]

NARRATIVE: CASE EVENT DATE: 2017
